FAERS Safety Report 12271713 (Version 1)
Quarter: 2016Q2

REPORT INFORMATION
  Report Type: Spontaneous
  Country: US (occurrence: None)
  Receive Date: 20160414
  Receipt Date: 20160414
  Transmission Date: 20160815
  Serious: Yes (Hospitalization)
  Sender: FDA-Public Use
  Company Number: None

PATIENT
  Age: 38 Year
  Sex: Female
  Weight: 63.63 kg

DRUGS (3)
  1. CYCLOPHOSPHAMIDE. [Suspect]
     Active Substance: CYCLOPHOSPHAMIDE
     Dates: end: 20160129
  2. DOXORUBICIN HYDROCHLORIDE. [Suspect]
     Active Substance: DOXORUBICIN HYDROCHLORIDE
     Dates: end: 20160129
  3. TAXOL [Suspect]
     Active Substance: PACLITAXEL
     Dates: end: 20160401

REACTIONS (5)
  - Tachycardia [None]
  - Pneumonia [None]
  - Chills [None]
  - Atelectasis [None]
  - Pyrexia [None]

NARRATIVE: CASE EVENT DATE: 20160402
